FAERS Safety Report 19692688 (Version 1)
Quarter: 2021Q3

REPORT INFORMATION
  Report Type: Spontaneous
  Country: US (occurrence: US)
  Receive Date: 20210812
  Receipt Date: 20210812
  Transmission Date: 20211014
  Serious: Yes (Hospitalization, Other)
  Sender: FDA-Public Use
  Company Number: US-MYLANLABS-2021M1050192

PATIENT
  Age: 58 Year
  Sex: Male

DRUGS (9)
  1. CARBOPLATIN. [Suspect]
     Active Substance: CARBOPLATIN
     Dosage: MONOTHERAPY
     Route: 065
     Dates: start: 201903
  2. MYCOPHENOLATE MOFETIL. [Suspect]
     Active Substance: MYCOPHENOLATE MOFETIL
     Indication: IMMUNOSUPPRESSANT DRUG THERAPY
     Dosage: 500 MILLIGRAM, BID
     Route: 065
  3. IPILIMUMAB [Concomitant]
     Active Substance: IPILIMUMAB
     Indication: SKIN SQUAMOUS CELL CARCINOMA METASTATIC
     Dosage: 3 MILLIGRAM/KILOGRAM, QD
     Route: 065
     Dates: start: 201907, end: 201909
  4. CETUXIMAB. [Suspect]
     Active Substance: CETUXIMAB
     Dosage: MONOTHERAPY
     Route: 065
     Dates: start: 2019
  5. TACROLIMUS. [Suspect]
     Active Substance: TACROLIMUS
     Indication: IMMUNOSUPPRESSANT DRUG THERAPY
     Dosage: 0.5 MILLIGRAM, Q4D
     Route: 065
  6. NIVOLUMAB [Concomitant]
     Active Substance: NIVOLUMAB
     Indication: SKIN SQUAMOUS CELL CARCINOMA METASTATIC
     Dosage: 1 MILLIGRAM/KILOGRAM, QD
     Route: 065
     Dates: start: 201907, end: 201909
  7. CARBOPLATIN. [Suspect]
     Active Substance: CARBOPLATIN
     Indication: SKIN SQUAMOUS CELL CARCINOMA METASTATIC
     Dosage: CARBOPLATIN PLUS CETUXIMAB
     Route: 065
     Dates: start: 201901
  8. SIROLIMUS. [Suspect]
     Active Substance: SIROLIMUS
     Indication: IMMUNOSUPPRESSANT DRUG THERAPY
     Dosage: 1 MILLIGRAM, EVERY OTHER DAY
     Route: 065
  9. CETUXIMAB. [Suspect]
     Active Substance: CETUXIMAB
     Indication: SKIN SQUAMOUS CELL CARCINOMA METASTATIC
     Dosage: CARBOPLATIN PLUS CETUXIMAB
     Route: 065
     Dates: start: 201901

REACTIONS (7)
  - Nausea [Unknown]
  - Metastases to lung [Recovering/Resolving]
  - Skin cancer [Recovering/Resolving]
  - Drug ineffective [Unknown]
  - Vomiting [Unknown]
  - Malignant melanoma [Recovering/Resolving]
  - Skin squamous cell carcinoma metastatic [Recovering/Resolving]

NARRATIVE: CASE EVENT DATE: 2018
